FAERS Safety Report 9408915 (Version 2)
Quarter: 2013Q3

REPORT INFORMATION
  Report Type: Spontaneous
  Country: US (occurrence: US)
  Receive Date: 20130719
  Receipt Date: 20130729
  Transmission Date: 20140515
  Serious: No
  Sender: FDA-Public Use
  Company Number: US-009507513-1307USA005372

PATIENT
  Age: 41 Year
  Sex: Female

DRUGS (1)
  1. NEXPLANON [Suspect]
     Indication: CONTRACEPTION
     Dosage: EVERY 3 YEARS, 1 ROD
     Route: 059
     Dates: start: 20130214

REACTIONS (2)
  - Malaise [Unknown]
  - Amenorrhoea [Unknown]
